FAERS Safety Report 18142292 (Version 1)
Quarter: 2020Q3

REPORT INFORMATION
  Report Type: Spontaneous
  Country: CN (occurrence: CN)
  Receive Date: 20200812
  Receipt Date: 20200812
  Transmission Date: 20201103
  Serious: Yes (Other)
  Sender: FDA-Public Use
  Company Number: CN-ASTRAZENECA-2020SE99789

PATIENT
  Age: 72 Year
  Sex: Male
  Weight: 64 kg

DRUGS (4)
  1. IMFINZI [Suspect]
     Active Substance: DURVALUMAB
     Indication: INFECTED NEOPLASM
     Route: 042
     Dates: start: 20200713, end: 20200713
  2. ETOPOSIDE. [Suspect]
     Active Substance: ETOPOSIDE
     Indication: INFECTED NEOPLASM
     Route: 041
     Dates: start: 20200710, end: 20200716
  3. IMFINZI [Suspect]
     Active Substance: DURVALUMAB
     Indication: INFECTED NEOPLASM
     Route: 041
     Dates: start: 20200713, end: 20200713
  4. CISPLATIN. [Suspect]
     Active Substance: CISPLATIN
     Indication: INFECTED NEOPLASM
     Route: 041
     Dates: start: 20200710, end: 20200713

REACTIONS (2)
  - Neutropenia [Recovering/Resolving]
  - Leukopenia [Recovering/Resolving]

NARRATIVE: CASE EVENT DATE: 20200720
